FAERS Safety Report 7597168-5 (Version None)
Quarter: 2011Q3

REPORT INFORMATION
  Report Type: 
  Country: None (occurrence: None)
  Receive Date: 20110708
  Receipt Date: 20100628
  Transmission Date: 20111222
  Serious: No
  Sender: FDA-Public Use
  Company Number: US-GLAXOSMITHKLINE-A0867405A

PATIENT
  Age: 79 Year
  Sex: Female

DRUGS (5)
  1. FIBER TABS [Concomitant]
  2. FLOVENT [Suspect]
     Indication: ASTHMA
     Dosage: 2PUFF TWICE PER DAY
     Route: 055
     Dates: start: 20100101
  3. VENTOLIN HFA [Concomitant]
  4. MONOPRIL [Concomitant]
  5. CALCIUM CARBONATE [Concomitant]

REACTIONS (1)
  - DYSPEPSIA [None]
